FAERS Safety Report 19743794 (Version 1)
Quarter: 2021Q3

REPORT INFORMATION
  Report Type: Spontaneous
  Country: US (occurrence: US)
  Receive Date: 20210824
  Receipt Date: 20210824
  Transmission Date: 20211014
  Serious: No
  Sender: FDA-Public Use
  Company Number: US-BEH-2021135142

PATIENT
  Sex: Male

DRUGS (1)
  1. CORIFACT [Suspect]
     Active Substance: FACTOR XIII CONCENTRATE (HUMAN)
     Indication: COAGULOPATHY
     Dosage: 1568 INTERNATIONAL UNIT EVERY 28 DAYS
     Route: 042
     Dates: start: 20210602

REACTIONS (1)
  - Dental caries [Unknown]
